FAERS Safety Report 18146122 (Version 2)
Quarter: 2020Q3

REPORT INFORMATION
  Report Type: Spontaneous
  Country: US (occurrence: US)
  Receive Date: 20200813
  Receipt Date: 20200819
  Transmission Date: 20201103
  Serious: Yes (Other)
  Sender: FDA-Public Use
  Company Number: US-PFIZER INC-2020306285

PATIENT
  Age: 83 Year
  Sex: Male

DRUGS (1)
  1. LYRICA [Suspect]
     Active Substance: PREGABALIN
     Dosage: 100 MG, DAILY [1 CAPSULE BY MOUTH QAM (EVERY MORNING), 1 AT NOON, 2 QHS (AT BEDTIME) A D DAY]
     Route: 048

REACTIONS (1)
  - Deafness [Unknown]
